APPROVED DRUG PRODUCT: ORABASE HCA
Active Ingredient: HYDROCORTISONE ACETATE
Strength: 0.5%
Dosage Form/Route: PASTE;TOPICAL
Application: A083205 | Product #001
Applicant: COLGATE ORAL PHARMACEUTICALS INC
Approved: Approved Prior to Jan 1, 1982 | RLD: No | RS: No | Type: DISCN